FAERS Safety Report 10925903 (Version 2)
Quarter: 2015Q2

REPORT INFORMATION
  Report Type: Spontaneous
  Country: CA (occurrence: None)
  Receive Date: 20150313
  Receipt Date: 20150508
  Transmission Date: 20150821
  Serious: Yes (Other)
  Sender: FDA-Public Use
  Company Number: 2015CA002192

PATIENT
  Age: 71 Year
  Sex: Male

DRUGS (11)
  1. PRAVACHOL (PRAVASTATIN SODIUM) [Concomitant]
  2. LOTRIDERM (BETAMETHASONE DIPROPIONATE, CLOTRIMAZOLE) [Concomitant]
  3. NEILMED SINUS RINSE (SODIUM BICARBONATE, SODIUM CHLORIDE) [Concomitant]
  4. AMCINONIDE. [Concomitant]
     Active Substance: AMCINONIDE
  5. MUPIROCIN. [Concomitant]
     Active Substance: MUPIROCIN
  6. ELIGARD [Suspect]
     Active Substance: LEUPROLIDE ACETATE
     Indication: PROSTATE CANCER
     Dosage: EVERY 4 MONTHS, SUBCUTANEOUS
     Route: 058
     Dates: start: 201303, end: 201411
  7. HYDROMORPHONE HYDROCHLORIDE. [Concomitant]
     Active Substance: HYDROMORPHONE HYDROCHLORIDE
  8. VOLTAREN /00372301/ (DICLOFENAC) [Concomitant]
  9. AMOX /00249601/ (AMOXICILLIN) [Concomitant]
  10. ALENDRONATE SODIUM. [Concomitant]
     Active Substance: ALENDRONATE SODIUM
  11. IRBESARTAN. [Concomitant]
     Active Substance: IRBESARTAN

REACTIONS (3)
  - Stress fracture [None]
  - Bone density decreased [None]
  - Pain [None]

NARRATIVE: CASE EVENT DATE: 201501
